FAERS Safety Report 8955097 (Version 1)
Quarter: 2012Q4

REPORT INFORMATION
  Report Type: 
  Country: JP (occurrence: JP)
  Receive Date: 20121207
  Receipt Date: 20121207
  Transmission Date: 20130627
  Serious: Yes (Hospitalization)
  Sender: FDA-Public Use
  Company Number: JP-009507513-1204USA03139

PATIENT
  Age: 50 Year
  Sex: Male
  Weight: 82.4 kg

DRUGS (9)
  1. INVESTIGATIONAL STUDY DRUG [Suspect]
     Dosage: 120 ?g, QW
     Route: 058
     Dates: start: 20120104, end: 20120418
  2. REBETOL [Suspect]
     Dosage: 1000 mg, qd
     Route: 048
     Dates: start: 20120104, end: 20120418
  3. MK-7009 [Suspect]
     Indication: HEPATITIS C
     Dosage: 2 UNK, UNK
     Route: 048
     Dates: start: 20120104, end: 20120613
  4. NORVASC [Concomitant]
     Indication: HYPERTENSION
     Dosage: 5 mg, qd
     Route: 048
     Dates: start: 20111205, end: 20120418
  5. MEVALOTIN [Concomitant]
     Indication: HYPERLIPIDAEMIA
     Dosage: 5 mg, bid
     Route: 048
     Dates: start: 20111205, end: 20120418
  6. ALESION [Concomitant]
     Indication: RHINITIS ALLERGIC
     Dosage: 20 mg, qd
     Route: 048
     Dates: start: 20120126, end: 20120418
  7. TERRACORTRIL (HYDROCORTISONE (+) OXYTETRACYCLINE HYDROCHLORIDE) [Concomitant]
     Indication: DRY SKIN
     Dosage: UNK, prn
     Route: 061
     Dates: start: 20120123
  8. YUSKIN I [Concomitant]
     Indication: DRY SKIN
     Dosage: UNK, prn
     Route: 061
     Dates: start: 20111205
  9. ZYLORIC [Concomitant]
     Indication: BLOOD URIC ACID DECREASED
     Dosage: 100 mg, bid
     Route: 048
     Dates: start: 20120321, end: 20120418

REACTIONS (2)
  - Appendicitis [Recovered/Resolved]
  - Pneumonia aspiration [Not Recovered/Not Resolved]
